FAERS Safety Report 6746522-X (Version None)
Quarter: 2010Q2

REPORT INFORMATION
  Report Type: 
  Country: None (occurrence: None)
  Receive Date: 20100528
  Receipt Date: 20100318
  Transmission Date: 20101027
  Serious: No
  Sender: FDA-Public Use
  Company Number: US-ASTRAZENECA-2010SE12589

PATIENT
  Sex: Female

DRUGS (4)
  1. PRILOSEC OTC [Suspect]
     Route: 048
     Dates: start: 20100201
  2. ANTIHYPERTENSIVES [Concomitant]
     Dosage: UNKNOWN
  3. ANTI-ASTHMATICS [Concomitant]
     Dosage: UNKNOWN
  4. CHOLESTEROL- AND TRIGLYCERIDE REDUCERS [Concomitant]
     Dosage: UNKNOWN

REACTIONS (3)
  - BLOOD PRESSURE INCREASED [None]
  - HYPERTENSION [None]
  - INCORRECT DRUG ADMINISTRATION DURATION [None]
